FAERS Safety Report 8338670-8 (Version None)
Quarter: 2012Q2

REPORT INFORMATION
  Report Type: 
  Country: None (occurrence: None)
  Receive Date: 20120504
  Receipt Date: 20120426
  Transmission Date: 20120825
  Serious: Yes (Other)
  Sender: FDA-Public Use
  Company Number: TW-ROXANE LABORATORIES, INC.-2012-RO-01149RO

PATIENT
  Age: 27 Year
  Sex: Female

DRUGS (4)
  1. ZOLPIDEM [Suspect]
     Indication: ANXIETY
  2. METHYLPREDNISOLONE [Suspect]
     Indication: ANKYLOSING SPONDYLITIS
     Dosage: 750 MG
     Route: 042
  3. ZOLPIDEM [Suspect]
     Indication: MOOD SWINGS
  4. ZOLPIDEM [Suspect]
     Indication: INSOMNIA

REACTIONS (6)
  - CATATONIA [None]
  - HAEMATURIA [None]
  - BLOOD PRESSURE INCREASED [None]
  - PYURIA [None]
  - TACHYCARDIA [None]
  - LEUKOCYTOSIS [None]
